FAERS Safety Report 25699719 (Version 1)
Quarter: 2025Q3

REPORT INFORMATION
  Report Type: Other
  Country: EU (occurrence: EU)
  Receive Date: 20250819
  Receipt Date: 20250819
  Transmission Date: 20251020
  Serious: Yes (Hospitalization, Other)
  Sender: OMNIVIUM PHARMACEUTICALS LLC
  Company Number: EU-Omnivium Pharmaceuticals LLC-2182782

PATIENT
  Age: 23 Year
  Sex: Male

DRUGS (4)
  1. NUMBRINO [Suspect]
     Active Substance: COCAINE HYDROCHLORIDE
     Indication: Product used for unknown indication
  2. METHADONE [Suspect]
     Active Substance: METHADONE HYDROCHLORIDE
  3. METHAMPHETAMINE HYDROCHLORIDE [Concomitant]
     Active Substance: METHAMPHETAMINE HYDROCHLORIDE
  4. LYSERGIDE [Concomitant]
     Active Substance: LYSERGIDE

REACTIONS (27)
  - Ischaemic cerebral infarction [Recovering/Resolving]
  - Toxicity to various agents [Recovering/Resolving]
  - Confusional state [Recovering/Resolving]
  - Tachycardia [Recovering/Resolving]
  - Sinus tachycardia [Recovering/Resolving]
  - Vasoconstriction [Recovering/Resolving]
  - Loss of consciousness [Recovering/Resolving]
  - Seizure [Recovering/Resolving]
  - Blister [Recovering/Resolving]
  - Pain in extremity [Recovering/Resolving]
  - Asthenia [Recovering/Resolving]
  - Gait inability [Recovering/Resolving]
  - Muscular weakness [Recovering/Resolving]
  - Retrograde amnesia [Recovering/Resolving]
  - Disorientation [Recovering/Resolving]
  - Neutrophilia [Recovering/Resolving]
  - C-reactive protein increased [Recovering/Resolving]
  - Urinary incontinence [Recovering/Resolving]
  - Pneumonia [Recovering/Resolving]
  - Substance abuse [Recovering/Resolving]
  - Circulatory collapse [Recovering/Resolving]
  - Muscle necrosis [Recovering/Resolving]
  - Encephalitis [Recovering/Resolving]
  - Pneumonia aspiration [Recovering/Resolving]
  - Rhabdomyolysis [Recovering/Resolving]
  - Liver injury [Recovering/Resolving]
  - Cerebral hypoperfusion [Recovering/Resolving]
